FAERS Safety Report 8256359-0 (Version None)
Quarter: 2012Q2

REPORT INFORMATION
  Report Type: 
  Country: None (occurrence: None)
  Receive Date: 20120402
  Receipt Date: 20120402
  Transmission Date: 20120825
  Serious: Yes (Hospitalization, Disabling)
  Sender: FDA-Public Use
  Company Number: None

PATIENT
  Age: 57 Year
  Sex: Female
  Weight: 65.318 kg

DRUGS (1)
  1. BONIVA [Suspect]
     Indication: OSTEOPOROSIS
     Dosage: 250MG. MONTHLY TAKEN ONLY 3 MONTHS DEC., JAN, FEB 2ND 2012

REACTIONS (12)
  - ABDOMINAL PAIN UPPER [None]
  - ARTHRALGIA [None]
  - NECK PAIN [None]
  - PLEURISY [None]
  - MYALGIA [None]
  - GAIT DISTURBANCE [None]
  - CHEST PAIN [None]
  - DYSPEPSIA [None]
  - ARTHRITIS [None]
  - MUSCULOSKELETAL PAIN [None]
  - BACK PAIN [None]
  - PAIN IN EXTREMITY [None]
